FAERS Safety Report 8835905 (Version 1)
Quarter: 2012Q4

REPORT INFORMATION
  Report Type: 
  Country: US (occurrence: US)
  Receive Date: 20121011
  Receipt Date: 20121011
  Transmission Date: 20130627
  Serious: No
  Sender: FDA-Public Use
  Company Number: US-PFIZER INC-2012251122

PATIENT
  Age: 57 Year
  Sex: Female
  Weight: 63.49 kg

DRUGS (8)
  1. CADUET [Suspect]
     Indication: HYPERTENSION
     Dosage: [amlodipine besilate10 mg]/[atorvastatin calucium 20 mg], 1x/day
     Route: 048
     Dates: end: 201207
  2. CADUET [Suspect]
     Indication: BLOOD CHOLESTEROL INCREASED
  3. ZOLOFT [Suspect]
     Indication: DEPRESSION
     Dosage: 50 mg, 1x/day
     Route: 048
     Dates: end: 201208
  4. ZOLOFT [Suspect]
     Indication: ANXIETY
  5. HYDROCHLOROTHIAZIDE [Concomitant]
     Dosage: 25 mg, 1x/day
  6. ALPRAZOLAM [Concomitant]
     Dosage: 0.5 mg, 2x/day
  7. ADVAIR [Concomitant]
     Dosage: [fluticasone propionate 500]/[salmeterol xinafoate 50]
  8. SPIRIVA [Concomitant]
     Dosage: 18 ug, UNK

REACTIONS (1)
  - Hypertension [Unknown]
